FAERS Safety Report 16916583 (Version 3)
Quarter: 2019Q4

REPORT INFORMATION
  Report Type: Spontaneous
  Country: NL (occurrence: NL)
  Receive Date: 20191014
  Receipt Date: 20191205
  Transmission Date: 20200122
  Serious: Yes (Life-Threatening, Hospitalization, Other)
  Sender: FDA-Public Use
  Company Number: NL-CELLTRION INC.-2019NL025487

PATIENT

DRUGS (2)
  1. RITUXIMAB (UNKNOWN) [Suspect]
     Active Substance: RITUXIMAB
     Indication: CHRONIC LYMPHOCYTIC LEUKAEMIA
     Dosage: UNK UNK, UNKNOWN FREQ
     Route: 065
  2. BENDAMUSTINE HYDROCHLORIDE. [Suspect]
     Active Substance: BENDAMUSTINE HYDROCHLORIDE
     Indication: CHRONIC LYMPHOCYTIC LEUKAEMIA
     Dosage: UNK UNK, CYCLIC
     Route: 042

REACTIONS (15)
  - Hyperkalaemia [Recovered/Resolved]
  - PO2 increased [Unknown]
  - QRS axis abnormal [Unknown]
  - Dehydration [Recovered/Resolved]
  - Blood bicarbonate decreased [Unknown]
  - Metabolic acidosis [Recovering/Resolving]
  - Asthenia [Recovered/Resolved]
  - Vomiting [Recovered/Resolved]
  - Tumour lysis syndrome [Recovering/Resolving]
  - Acute kidney injury [Recovered/Resolved]
  - Blood phosphorus increased [Unknown]
  - Dysarthria [Recovered/Resolved]
  - Dyspnoea [Recovered/Resolved]
  - Hyperventilation [Unknown]
  - Blood uric acid increased [Unknown]
